FAERS Safety Report 10859817 (Version 1)
Quarter: 2015Q1

REPORT INFORMATION
  Report Type: Spontaneous
  Country: US (occurrence: US)
  Receive Date: 20150223
  Receipt Date: 20150223
  Transmission Date: 20150721
  Serious: No
  Sender: FDA-Public Use
  Company Number: US-CELGENEUS-163-21880-14082084

PATIENT
  Sex: Female

DRUGS (1)
  1. REVLIMID [Suspect]
     Active Substance: LENALIDOMIDE
     Indication: PLASMA CELL MYELOMA
     Dosage: .0274 MILLIGRAM
     Route: 048
     Dates: start: 201407

REACTIONS (5)
  - Ageusia [Unknown]
  - Muscle spasms [Unknown]
  - Weight increased [Unknown]
  - Nasal discomfort [Unknown]
  - Hypersomnia [Unknown]

NARRATIVE: CASE EVENT DATE: 2014
